FAERS Safety Report 5730657-4 (Version None)
Quarter: 2008Q2

REPORT INFORMATION
  Report Type: 
  Country: None (occurrence: None)
  Receive Date: 20080507
  Receipt Date: 20080425
  Transmission Date: 20081010
  Serious: Yes (Other)
  Sender: FDA-Public Use
  Company Number: DE-WYE-H03077708

PATIENT
  Sex: Female

DRUGS (2)
  1. CORDAREX [Suspect]
     Indication: TACHYCARDIA
     Route: 048
     Dates: start: 20061102, end: 20080302
  2. CORDAREX [Suspect]
     Indication: TACHYARRHYTHMIA

REACTIONS (2)
  - BLISTER [None]
  - SKIN ULCER [None]
